FAERS Safety Report 20997325 (Version 1)
Quarter: 2022Q2

REPORT INFORMATION
  Report Type: Spontaneous
  Country: US (occurrence: None)
  Receive Date: 20220622
  Receipt Date: 20220622
  Transmission Date: 20220721
  Serious: Yes (Hospitalization)
  Sender: FDA-Public Use
  Company Number: None

PATIENT
  Sex: Female

DRUGS (8)
  1. ENBREL [Suspect]
     Active Substance: ETANERCEPT
     Indication: Rheumatoid arthritis
     Dosage: INJECT 1 CARTRIDGE UNDER THE SKIN (SUBCUTANEOUS INJECTION) EVERY WEEK?
     Route: 058
     Dates: start: 20200918
  2. FOLIC ACID TAB [Concomitant]
  3. HYDROXYCHLOR TAB [Concomitant]
  4. METHOTREXATE [Concomitant]
     Active Substance: METHOTREXATE
  5. MULTIVITAMIN TAB [Concomitant]
  6. PREDNISONE [Concomitant]
     Active Substance: PREDNISONE
  7. TYLENOL TAB [Concomitant]
  8. VITAMIN D3 CAP [Concomitant]

REACTIONS (1)
  - Hospitalisation [None]
